FAERS Safety Report 6393878-6 (Version None)
Quarter: 2009Q4

REPORT INFORMATION
  Report Type: 
  Country: None (occurrence: None)
  Receive Date: 20091008
  Receipt Date: 20091002
  Transmission Date: 20100525
  Serious: Yes (Other)
  Sender: FDA-Public Use
  Company Number: JP-ALLERGAN-0907850US

PATIENT
  Age: 41 Year
  Sex: Female

DRUGS (8)
  1. BOTOX [Suspect]
     Indication: TORTICOLLIS
     Dosage: UNK, SINGLE
     Route: 030
     Dates: start: 20080501, end: 20080501
  2. BOTOX [Suspect]
     Dosage: UNK
     Route: 030
     Dates: start: 20030815, end: 20030815
  3. CLONAZEPAM [Concomitant]
     Indication: HYPOTONIA
     Dosage: UNK
     Route: 048
     Dates: start: 19981201
  4. DANTROLENE SODIUM [Concomitant]
     Indication: HYPOTONIA
     Dosage: UNK MG, TID
     Route: 048
     Dates: start: 19981201
  5. ETIZOLAM [Concomitant]
     Indication: HYPOTONIA
     Dosage: 1 MG, QD
     Route: 048
     Dates: start: 20010801
  6. NITRAZEPAM [Concomitant]
     Indication: INSOMNIA
     Dosage: 5 MG, QD
     Route: 048
     Dates: start: 20001101
  7. FLUVOXAMINE MALEATE [Concomitant]
     Indication: DEPRESSION
     Dosage: 50 MG, BID
     Route: 048
     Dates: start: 20070101
  8. ZOLPIDEM TARTRATE [Concomitant]
     Indication: INSOMNIA
     Dosage: 5 MG, QD
     Route: 048
     Dates: start: 20070501

REACTIONS (3)
  - DYSPHAGIA [None]
  - EATING DISORDER [None]
  - WHEEZING [None]
